FAERS Safety Report 24566214 (Version 2)
Quarter: 2024Q4

REPORT INFORMATION
  Report Type: Report from Study
  Country: MX (occurrence: MX)
  Receive Date: 20241030
  Receipt Date: 20241202
  Transmission Date: 20250114
  Serious: Yes (Death, Hospitalization)
  Sender: NOVARTIS
  Company Number: MX-002147023-NVSC2024MX159371

PATIENT
  Age: 47 Year
  Sex: Male
  Weight: 73 kg

DRUGS (1)
  1. TASIGNA [Suspect]
     Active Substance: NILOTINIB
     Indication: Chronic myeloid leukaemia
     Dosage: 2 DOSAGE FORM OF 200 MG
     Route: 048

REACTIONS (12)
  - Leukaemia [Fatal]
  - Cardiac arrest [Fatal]
  - Septic shock [Fatal]
  - Chronic myeloid leukaemia recurrent [Fatal]
  - Pneumonia bacterial [Fatal]
  - Pericardial effusion [Recovered/Resolved]
  - Infective pericardial effusion [Unknown]
  - Cough [Unknown]
  - Pyrexia [Unknown]
  - Chills [Recovered/Resolved]
  - Pulmonary oedema [Recovered/Resolved]
  - White blood cell count abnormal [Unknown]

NARRATIVE: CASE EVENT DATE: 20240201
